FAERS Safety Report 19060685 (Version 1)
Quarter: 2021Q1

REPORT INFORMATION
  Report Type: Spontaneous
  Country: GB (occurrence: GB)
  Receive Date: 20210325
  Receipt Date: 20210325
  Transmission Date: 20210420
  Serious: Yes (Other)
  Sender: FDA-Public Use
  Company Number: GB-MYLANLABS-2021M1016744

PATIENT
  Sex: Female
  Weight: 46.26 kg

DRUGS (2)
  1. BISOPROLOL [Suspect]
     Active Substance: BISOPROLOL
     Indication: BLOOD PRESSURE INADEQUATELY CONTROLLED
     Dosage: 1.25MG
     Route: 048
     Dates: start: 20190328, end: 20190928
  2. SYMBICORT [Suspect]
     Active Substance: BUDESONIDE\FORMOTEROL FUMARATE DIHYDRATE
     Indication: HYPERTENSION
     Dosage: 50MG TWICE A DAY
     Route: 055
     Dates: start: 20160503, end: 20160730

REACTIONS (3)
  - Medication error [Unknown]
  - Blood pressure decreased [Recovered/Resolved with Sequelae]
  - Hypertension [Recovered/Resolved with Sequelae]

NARRATIVE: CASE EVENT DATE: 20190528
